FAERS Safety Report 24724583 (Version 1)
Quarter: 2024Q4

REPORT INFORMATION
  Report Type: Spontaneous
  Country: US (occurrence: US)
  Receive Date: 20241212
  Receipt Date: 20241212
  Transmission Date: 20250114
  Serious: No
  Sender: STRIDES
  Company Number: US-STRIDES ARCOLAB LIMITED-2024SP001006

PATIENT
  Age: 47 Year

DRUGS (11)
  1. OXYBUTYNIN [Suspect]
     Active Substance: OXYBUTYNIN
     Indication: Vaginal discharge
     Dosage: 2.5 MILLIGRAM, BID (TABLET)
     Route: 065
  2. OXYBUTYNIN [Suspect]
     Active Substance: OXYBUTYNIN
     Dosage: 5 MILLIGRAM, BID (TABLET)
     Route: 065
  3. GLYCOPYRROLATE [Suspect]
     Active Substance: GLYCOPYRROLATE
     Indication: Vaginal discharge
     Dosage: 1 MILLIGRAM, BID
     Route: 048
  4. GLYCOPYRROLATE [Suspect]
     Active Substance: GLYCOPYRROLATE
     Dosage: 4 MILLIGRAM, BID
     Route: 048
  5. GLYCOPYRROLATE [Suspect]
     Active Substance: GLYCOPYRROLATE
     Dosage: 2 MILLIGRAM, PRN (ONLY 2?3 TIMES PER MONTH CORRESPONDING WITH INTERCOURSE OR DILATION)
     Route: 048
  6. EMTRICITABINE\TENOFOVIR DISOPROXIL FUMARATE [Concomitant]
     Active Substance: EMTRICITABINE\TENOFOVIR DISOPROXIL FUMARATE
     Indication: Product used for unknown indication
     Dosage: UNK
     Route: 065
  7. TRAZODONE [Concomitant]
     Active Substance: TRAZODONE HYDROCHLORIDE
     Indication: Product used for unknown indication
     Dosage: UNK
     Route: 065
  8. LORATADINE [Concomitant]
     Active Substance: LORATADINE
     Indication: Product used for unknown indication
     Dosage: UNK
     Route: 065
  9. CLOBETASOL [Concomitant]
     Active Substance: CLOBETASOL
     Indication: Dermatitis contact
     Dosage: UNK
     Route: 065
  10. KENALOG [Concomitant]
     Active Substance: TRIAMCINOLONE ACETONIDE
     Indication: Dermatitis contact
     Dosage: UNK
     Route: 065
  11. PETROLEUM JELLY [Concomitant]
     Active Substance: PETROLATUM
     Indication: Dermatitis contact
     Dosage: UNK
     Route: 061

REACTIONS (4)
  - Dry mouth [Unknown]
  - Constipation [Unknown]
  - Drug intolerance [Unknown]
  - Off label use [Unknown]
